FAERS Safety Report 9464089 (Version 3)
Quarter: 2013Q4

REPORT INFORMATION
  Report Type: Report from Study
  Country: US (occurrence: US)
  Receive Date: 20130819
  Receipt Date: 20131017
  Transmission Date: 20140711
  Serious: Yes (Other)
  Sender: FDA-Public Use
  Company Number: US-SANOFI-AVENTIS-2013SA075874

PATIENT
  Age: 49 Year
  Sex: Female

DRUGS (3)
  1. AUBAGIO [Suspect]
     Indication: MULTIPLE SCLEROSIS
     Route: 048
     Dates: start: 201307, end: 20130926
  2. LISINOPRIL [Concomitant]
  3. CORTICOSTEROID NOS [Concomitant]

REACTIONS (12)
  - Blindness [Unknown]
  - Vision blurred [Unknown]
  - Swelling face [Unknown]
  - Pharyngeal oedema [Unknown]
  - Dysmenorrhoea [Not Recovered/Not Resolved]
  - Urine odour abnormal [Not Recovered/Not Resolved]
  - Fatigue [Not Recovered/Not Resolved]
  - Abdominal pain upper [Not Recovered/Not Resolved]
  - Abdominal distension [Not Recovered/Not Resolved]
  - Nausea [Recovered/Resolved]
  - Alopecia [Unknown]
  - Diarrhoea [Unknown]
